FAERS Safety Report 11820219 (Version 1)
Quarter: 2015Q4

REPORT INFORMATION
  Report Type: Spontaneous
  Country: US (occurrence: None)
  Receive Date: 20151209
  Receipt Date: 20151209
  Transmission Date: 20160305
  Serious: No
  Sender: FDA-Public Use
  Company Number: None

PATIENT
  Age: 39 Year
  Sex: Female

DRUGS (19)
  1. LIDOCAINE. [Concomitant]
     Active Substance: LIDOCAINE
  2. METOLAZONE. [Concomitant]
     Active Substance: METOLAZONE
  3. NIFEDIPINE. [Concomitant]
     Active Substance: NIFEDIPINE
  4. PEG [Concomitant]
     Active Substance: POLYETHYLENE GLYCOLS
  5. LYRICA [Concomitant]
     Active Substance: PREGABALIN
  6. DOCUSATE [Concomitant]
     Active Substance: DOCUSATE
  7. LOPERAMIDE [Concomitant]
     Active Substance: LOPERAMIDE
  8. PANTOPRAZOLE [Concomitant]
     Active Substance: PANTOPRAZOLE SODIUM
  9. STIVARGA [Suspect]
     Active Substance: REGORAFENIB
     Indication: PRODUCT USED FOR UNKNOWN INDICATION
     Route: 048
     Dates: start: 20151202, end: 20151208
  10. FENTANYL. [Concomitant]
     Active Substance: FENTANYL
  11. LISINOPRIL. [Concomitant]
     Active Substance: LISINOPRIL
  12. PROCHLORPERAZINE. [Concomitant]
     Active Substance: PROCHLORPERAZINE
  13. METOPROLOL [Concomitant]
     Active Substance: METOPROLOL
  14. SIMVASTATIN. [Concomitant]
     Active Substance: SIMVASTATIN
  15. GABAPENTIN. [Concomitant]
     Active Substance: GABAPENTIN
  16. NORTRIPTYYLINE [Concomitant]
  17. ONDANSETRON [Concomitant]
     Active Substance: ONDANSETRON
  18. CLONIDINE. [Concomitant]
     Active Substance: CLONIDINE
  19. OXYCODONE [Concomitant]
     Active Substance: OXYCODONE

REACTIONS (1)
  - Paraesthesia [None]

NARRATIVE: CASE EVENT DATE: 20151208
